FAERS Safety Report 10707348 (Version 1)
Quarter: 2015Q1

REPORT INFORMATION
  Report Type: Spontaneous
  Country: US (occurrence: None)
  Receive Date: 20150112
  Receipt Date: 20150112
  Transmission Date: 20150721
  Serious: Yes (Hospitalization)
  Sender: FDA-Public Use
  Company Number: None

PATIENT
  Age: 70 Year
  Sex: Male
  Weight: 48.98 kg

DRUGS (16)
  1. NEXIUM [Concomitant]
     Active Substance: ESOMEPRAZOLE MAGNESIUM
  2. SYMBICORT [Concomitant]
     Active Substance: BUDESONIDE\FORMOTEROL FUMARATE DIHYDRATE
  3. SENNA [Concomitant]
     Active Substance: SENNA LEAF\SENNOSIDES\SENNOSIDES A AND B
  4. JANTOVEN [Concomitant]
     Active Substance: WARFARIN SODIUM
  5. ONDANSETRON [Concomitant]
     Active Substance: ONDANSETRON
  6. PREDNISONE. [Concomitant]
     Active Substance: PREDNISONE
  7. OXYCODONE [Concomitant]
     Active Substance: OXYCODONE
  8. PAZOPANIB [Suspect]
     Active Substance: PAZOPANIB
     Indication: SQUAMOUS CELL CARCINOMA
     Dates: start: 20150108
  9. LIDOCAINE. [Concomitant]
     Active Substance: LIDOCAINE
  10. LOVENOX [Concomitant]
     Active Substance: ENOXAPARIN SODIUM
  11. LEVOTHYROXINE [Concomitant]
     Active Substance: LEVOTHYROXINE
  12. MINOCYCLINE [Concomitant]
     Active Substance: MINOCYCLINE\MINOCYCLINE HYDROCHLORIDE
  13. WARFARIN [Concomitant]
     Active Substance: WARFARIN
  14. ENOXAPARIN [Concomitant]
     Active Substance: ENOXAPARIN
  15. MEGESTROL [Concomitant]
     Active Substance: MEGESTROL
  16. CETUXIMAB [Suspect]
     Active Substance: CETUXIMAB
     Indication: SQUAMOUS CELL CARCINOMA
     Dates: start: 20150108

REACTIONS (4)
  - Pharyngeal fistula [None]
  - Fall [None]
  - Headache [None]
  - Swelling face [None]

NARRATIVE: CASE EVENT DATE: 20150108
